FAERS Safety Report 6439942-4 (Version None)
Quarter: 2009Q4

REPORT INFORMATION
  Report Type: 
  Country: None (occurrence: None)
  Receive Date: 20091113
  Receipt Date: 20091106
  Transmission Date: 20100525
  Serious: Yes (Other)
  Sender: FDA-Public Use
  Company Number: US-JNJFOC-20090809174

PATIENT
  Sex: Male

DRUGS (1)
  1. ARESTIN [Suspect]
     Indication: PERIODONTAL DISEASE
     Route: 065

REACTIONS (3)
  - EYE SWELLING [None]
  - FACIAL PALSY [None]
  - OCULAR HYPERAEMIA [None]
